FAERS Safety Report 12836796 (Version 3)
Quarter: 2018Q2

REPORT INFORMATION
  Report Type: Report from Study
  Country: US (occurrence: US)
  Receive Date: 20161011
  Receipt Date: 20180402
  Transmission Date: 20180711
  Serious: Yes (Hospitalization)
  Sender: FDA-Public Use
  Company Number: US-ACTELION-A-NJ2016-143309

PATIENT
  Age: 68 Year
  Sex: Female
  Weight: 107.94 kg

DRUGS (18)
  1. BUTRANS [Concomitant]
     Active Substance: BUPRENORPHINE
     Dosage: 5 MCG, PER HR, 7 DAY PATCH
     Dates: start: 201705
  2. LYRICA [Concomitant]
     Active Substance: PREGABALIN
     Dosage: 100 MG QAM, 300 MG QPM
     Dates: start: 2007
  3. FENOFIBRATE. [Concomitant]
     Active Substance: FENOFIBRATE
     Dosage: 145 MG, QAM
  4. MAGNESIUM [Concomitant]
     Active Substance: MAGNESIUM
     Dosage: 400 MG, QD
  5. OPSUMIT [Suspect]
     Active Substance: MACITENTAN
     Indication: PULMONARY ARTERIAL HYPERTENSION
     Dosage: 10 MG, QD
     Route: 048
     Dates: start: 20140623
  6. METFORMIN ER [Concomitant]
     Active Substance: METFORMIN HYDROCHLORIDE
     Dosage: 500 MG, BID
     Dates: start: 200004
  7. FUROSEMIDE. [Concomitant]
     Active Substance: FUROSEMIDE
     Dosage: 40 MG, BID
  8. POTASSIUM CHLORIDE. [Concomitant]
     Active Substance: POTASSIUM CHLORIDE
     Dosage: 10 MEQ, QD
  9. LANTUS [Concomitant]
     Active Substance: INSULIN GLARGINE
     Dosage: 25 U, BID
     Dates: start: 2007
  10. NOVOLOG [Concomitant]
     Active Substance: INSULIN ASPART
     Dosage: UNK, PRN
     Dates: start: 2007
  11. EDARBI [Concomitant]
     Active Substance: AZILSARTAN KAMEDOXOMIL
     Dosage: 40 MG, QD
     Dates: start: 2010
  12. VITAMIN B [Concomitant]
     Active Substance: VITAMIN B
     Dosage: 1 GUMMY, QD
  13. FLUTICASONE. [Concomitant]
     Active Substance: FLUTICASONE
     Dosage: 2 SPRAY, QD
     Dates: start: 2017
  14. HYDROCODONE/ACETAMINOPHEN [Concomitant]
     Active Substance: ACETAMINOPHEN\HYDROCODONE
     Dosage: 5 MG/325 MG
     Dates: start: 201505, end: 2017
  15. PANTOPRAZOLE [Concomitant]
     Active Substance: PANTOPRAZOLE
     Dosage: 40 MG, QAM
     Dates: start: 1995
  16. BABY ASPIRIN [Concomitant]
     Active Substance: ASPIRIN
     Dosage: 81 MG, QD
     Dates: start: 2000
  17. VITAMIN B12 [Concomitant]
     Active Substance: CYANOCOBALAMIN
     Dosage: 1-2 GUMMIES, QD
  18. VITAMIN D [Concomitant]
     Active Substance: CHOLECALCIFEROL
     Dosage: 2000 MG, QD

REACTIONS (14)
  - Decreased appetite [Recovered/Resolved]
  - Peripheral swelling [Recovered/Resolved]
  - Fall [Recovered/Resolved]
  - Arthritis [Recovered/Resolved]
  - Back pain [Recovering/Resolving]
  - Pain in extremity [Recovered/Resolved]
  - Nasal congestion [Recovered/Resolved]
  - Weight decreased [Not Recovered/Not Resolved]
  - Gait inability [Recovered/Resolved]
  - Weight increased [Recovered/Resolved]
  - Dyspnoea [Not Recovered/Not Resolved]
  - Cystitis [Recovered/Resolved]
  - Spinal operation [Recovered/Resolved]
  - Urinary tract infection [Recovered/Resolved]

NARRATIVE: CASE EVENT DATE: 2015
